FAERS Safety Report 7402237-6 (Version None)
Quarter: 2011Q2

REPORT INFORMATION
  Report Type: 
  Country: None (occurrence: None)
  Receive Date: 20110401
  Receipt Date: 20110318
  Transmission Date: 20111010
  Serious: Yes (Hospitalization, Other)
  Sender: FDA-Public Use
  Company Number: LTI2007A00313

PATIENT
  Age: 68 Year
  Sex: Female

DRUGS (8)
  1. MYOLASTEN (TETRAZEPAM) [Suspect]
     Dosage: (50 MG) ORAL
     Route: 048
  2. AMARYL [Suspect]
     Dosage: ORAL
     Route: 048
  3. AMPECYCLAL (HEPTAMINOL ADENOSINE PHOSPHATE) [Suspect]
     Dosage: (300 MG) ORAL
     Route: 048
  4. ACTOS [Suspect]
     Indication: TYPE 2 DIABETES MELLITUS
     Dosage: 30 MG (30 MG,1 - 2 ) 6 MG  ORAL
     Route: 048
     Dates: start: 20060201, end: 20071001
  5. ZOCOR [Suspect]
     Indication: DYSLIPIDAEMIA
     Dosage: (20 MG) ORAL
     Route: 048
  6. LIORESAL [Suspect]
     Dosage: ORAL
     Route: 048
  7. GLUCOPHAGE [Suspect]
     Indication: TYPE 2 DIABETES MELLITUS
     Dosage: 3000 MG (1000 MG,3 IN 1 D) ORAL
     Route: 048
  8. INDAPAMIDE [Suspect]
     Dosage: (1.5 MG) ORAL
     Route: 048

REACTIONS (7)
  - OSTEOPOROSIS [None]
  - POSTMENOPAUSE [None]
  - FEMUR FRACTURE [None]
  - HYPERPARATHYROIDISM SECONDARY [None]
  - VITAMIN D DEFICIENCY [None]
  - TIBIA FRACTURE [None]
  - PATHOLOGICAL FRACTURE [None]
